FAERS Safety Report 13651429 (Version 9)
Quarter: 2018Q3

REPORT INFORMATION
  Report Type: Spontaneous
  Country: US (occurrence: US)
  Receive Date: 20170614
  Receipt Date: 20180808
  Transmission Date: 20181010
  Serious: Yes (Death, Hospitalization)
  Sender: FDA-Public Use
  Company Number: US-PFIZER INC-2017258529

PATIENT
  Age: 10 Day
  Sex: Male
  Weight: 3.2 kg

DRUGS (16)
  1. AMIODARONE HCL [Suspect]
     Active Substance: AMIODARONE HYDROCHLORIDE
     Indication: ARRHYTHMIA SUPRAVENTRICULAR
     Dosage: 5 MG/KG, (TO BE INFUSED OVER 60 MINUTES, AND ABOUT 10 MINUTES INTO THE INFUSION (AFTER 6 MG ADMINIS)
     Route: 040
  2. DEXMEDETOMIDINE HYDROCHLORIDE. [Suspect]
     Active Substance: DEXMEDETOMIDINE HYDROCHLORIDE
     Indication: JUNCTIONAL ECTOPIC TACHYCARDIA
     Dosage: 1 UG/KG, PER HOUR
  3. EPINEPHRINE. [Concomitant]
     Active Substance: EPINEPHRINE
     Dosage: 0.07 UG/KG, PER MIN
     Route: 042
  4. MILRINONE [Concomitant]
     Active Substance: MILRINONE
     Dosage: 0.5 UG/KG, PER MIN
  5. ALBUMIN [Concomitant]
     Active Substance: ALBUMIN HUMAN
     Dosage: UNK (10 ML/KG )
  6. DEXMEDETOMIDINE HYDROCHLORIDE. [Suspect]
     Active Substance: DEXMEDETOMIDINE HYDROCHLORIDE
     Indication: SEDATION
     Dosage: 0.5 UG/KG, PER HOUR (0.5 UG/KG/H WITHOUT A LOADING DOSE)
  7. VASOPRESSIN. [Concomitant]
     Active Substance: VASOPRESSIN
     Dosage: UNK (0.0006 U/KG/MIN)
  8. MAGNESIUM [Concomitant]
     Active Substance: MAGNESIUM
     Dosage: 50 MG/KG, UNK
  9. AMIODARONE HCL [Suspect]
     Active Substance: AMIODARONE HYDROCHLORIDE
     Indication: ARRHYTHMIA SUPRAVENTRICULAR
     Dosage: 5 MG/KG, UNK
     Route: 065
  10. AMIODARONE HCL [Suspect]
     Active Substance: AMIODARONE HYDROCHLORIDE
     Indication: JUNCTIONAL ECTOPIC TACHYCARDIA
  11. DEXMEDETOMIDINE HYDROCHLORIDE. [Suspect]
     Active Substance: DEXMEDETOMIDINE HYDROCHLORIDE
     Dosage: 1.5 UG/KG, PER HOUR
  12. VASOPRESSIN. [Concomitant]
     Active Substance: VASOPRESSIN
     Dosage: UNK (0.0003 U/KG/MIN)
  13. MAGNESIUM [Concomitant]
     Active Substance: MAGNESIUM
     Dosage: 50 MG/KG
     Route: 040
  14. AMIODARONE HCL [Suspect]
     Active Substance: AMIODARONE HYDROCHLORIDE
     Indication: JUNCTIONAL ECTOPIC TACHYCARDIA
  15. EPINEPHRINE. [Concomitant]
     Active Substance: EPINEPHRINE
     Dosage: 0.04 UG/KG, PER MIN
  16. NITROGLYCERIN. [Concomitant]
     Active Substance: NITROGLYCERIN
     Dosage: 0.2 UG/KG, PER MIN

REACTIONS (2)
  - Product use issue [Unknown]
  - Cardiac arrest [Fatal]
